FAERS Safety Report 19588937 (Version 3)
Quarter: 2025Q3

REPORT INFORMATION
  Report Type: Spontaneous
  Country: CA (occurrence: CA)
  Receive Date: 20210721
  Receipt Date: 20250809
  Transmission Date: 20251020
  Serious: Yes (Other)
  Sender: ALEXION PHARMACEUTICALS
  Company Number: 2021A619552

PATIENT
  Age: 55 Year
  Sex: Female

DRUGS (2)
  1. ROSUVASTATIN CALCIUM [Suspect]
     Active Substance: ROSUVASTATIN CALCIUM
     Indication: Hypercholesterolaemia
     Dosage: 10 MILLIGRAM, QD
     Dates: start: 201604, end: 201611
  2. ZOCOR [Suspect]
     Active Substance: SIMVASTATIN
     Indication: Hypercholesterolaemia
     Dosage: 10 MILLIGRAM, QD
     Dates: start: 201704

REACTIONS (4)
  - Cross sensitivity reaction [Not Recovered/Not Resolved]
  - Drug eruption [Not Recovered/Not Resolved]
  - Fixed eruption [Unknown]
  - Skin lesion [Not Recovered/Not Resolved]
